FAERS Safety Report 18231994 (Version 13)
Quarter: 2022Q2

REPORT INFORMATION
  Report Type: Spontaneous
  Country: US (occurrence: US)
  Receive Date: 20200904
  Receipt Date: 20220407
  Transmission Date: 20220721
  Serious: Yes (Other)
  Sender: FDA-Public Use
  Company Number: US-PFIZER INC-2020342600

PATIENT
  Age: 65 Year
  Sex: Female
  Weight: 104.3 kg

DRUGS (1)
  1. IBRANCE [Suspect]
     Active Substance: PALBOCICLIB
     Indication: Bone cancer
     Dosage: 125 MG, CYCLIC [ONCE A DAY FOR 21 DAYS AND OFF 7 DAYS]
     Route: 048
     Dates: start: 202002

REACTIONS (7)
  - Muscular weakness [Not Recovered/Not Resolved]
  - Cataract [Unknown]
  - Off label use [Unknown]
  - Productive cough [Unknown]
  - Noninfective gingivitis [Unknown]
  - Arthritis [Unknown]
  - Joint range of motion decreased [Unknown]

NARRATIVE: CASE EVENT DATE: 20200101
